FAERS Safety Report 6198603-X (Version None)
Quarter: 2009Q2

REPORT INFORMATION
  Report Type: 
  Country: None (occurrence: None)
  Receive Date: 20090519
  Receipt Date: 20090519
  Transmission Date: 20091009
  Serious: Yes (Other)
  Sender: FDA-Public Use
  Company Number: None

PATIENT
  Age: 59 Year
  Sex: Female
  Weight: 99.7913 kg

DRUGS (2)
  1. LEVAQUIN [Suspect]
     Indication: ASTHMA
     Dates: start: 20090424, end: 20090428
  2. LEVAQUIN [Suspect]
     Indication: PNEUMONIA
     Dates: start: 20090424, end: 20090428

REACTIONS (5)
  - ARTHRALGIA [None]
  - DYSSTASIA [None]
  - GAIT DISTURBANCE [None]
  - JOINT SWELLING [None]
  - MUSCULOSKELETAL PAIN [None]
